FAERS Safety Report 8763357 (Version 2)
Quarter: 2012Q4

REPORT INFORMATION
  Report Type: 
  Country: US (occurrence: US)
  Receive Date: 20120904
  Receipt Date: 20121016
  Transmission Date: 20130627
  Serious: No
  Sender: FDA-Public Use
  Company Number: US-PFIZER INC-2012212187

PATIENT
  Age: 77 Year
  Sex: Female
  Weight: 86.17 kg

DRUGS (6)
  1. TOVIAZ [Suspect]
     Indication: POLLAKIURIA
     Dosage: 8 mg, daily
     Dates: start: 20120430
  2. WARFARIN SODIUM [Suspect]
     Indication: ANTICOAGULANT THERAPY
     Dosage: 2.5 mg daily
  3. METOPROLOL [Concomitant]
     Dosage: UNK, (half tablet daily)
     Route: 048
  4. AMLODIPINE [Concomitant]
     Dosage: UNK, ((half tablet daily)
     Route: 048
  5. CRESTOR [Concomitant]
     Indication: THROMBOSIS PROPHYLAXIS
     Dosage: 2.5 mg, 1x/day
  6. QUINAPRIL [Concomitant]
     Dosage: 20 mg, 2x/day

REACTIONS (3)
  - Drug ineffective [Unknown]
  - Urinary incontinence [Unknown]
  - Drug level increased [Unknown]
